FAERS Safety Report 8086826-4 (Version None)
Quarter: 2012Q1

REPORT INFORMATION
  Report Type: 
  Country: None (occurrence: None)
  Receive Date: 20120128
  Receipt Date: 20110519
  Transmission Date: 20120608
  Serious: No
  Sender: FDA-Public Use
  Company Number: US-ABBOTT-11P-163-0727031-00

PATIENT
  Sex: Female

DRUGS (6)
  1. FOLIC ACID [Concomitant]
     Indication: VITAMIN SUPPLEMENTATION
  2. HUMIRA [Suspect]
     Indication: RHEUMATOID ARTHRITIS
     Dates: start: 20110401
  3. METHOTREXATE [Concomitant]
     Indication: RHEUMATOID ARTHRITIS
  4. BONIVA [Concomitant]
     Indication: OSTEOPOROSIS
  5. TOLETAN [Concomitant]
     Indication: RHEUMATOID ARTHRITIS
  6. CALCIUM +D [Concomitant]
     Indication: OSTEOPOROSIS

REACTIONS (1)
  - CYSTITIS NONINFECTIVE [None]
